FAERS Safety Report 6804192-6 (Version None)
Quarter: 2010Q2

REPORT INFORMATION
  Report Type: 
  Country: None (occurrence: None)
  Receive Date: 20100628
  Receipt Date: 20070215
  Transmission Date: 20101027
  Serious: No
  Sender: FDA-Public Use
  Company Number: US-PFIZER INC-2007013160

PATIENT
  Sex: Female
  Weight: 61.23 kg

DRUGS (2)
  1. PROCARDIA XL [Suspect]
     Indication: HYPERTENSION
     Dates: end: 20070210
  2. PROCARDIA XL [Suspect]
     Indication: DYSPNOEA

REACTIONS (2)
  - LABORATORY TEST ABNORMAL [None]
  - MUSCULOSKELETAL PAIN [None]
